FAERS Safety Report 4590848-5 (Version None)
Quarter: 2005Q1

REPORT INFORMATION
  Report Type: 
  Country: None (occurrence: None)
  Receive Date: 20050215
  Receipt Date: 20050210
  Transmission Date: 20050727
  Serious: No
  Sender: FDA-Public Use
  Company Number: MEDI-0001562

PATIENT
  Age: 52 Year
  Sex: Female
  Weight: 97.5234 kg

DRUGS (5)
  1. CYTOMEGALOVIRUS (IMMUNOGLOBULIN CYTOMEGALOVIRUS) [Suspect]
     Indication: ANTIVIRAL PROPHYLAXIS
     Dosage: , 1 IN 30 D, IV
     Route: 042
     Dates: start: 20030920, end: 20030920
  2. PROGRAF [Concomitant]
  3. CELLCEPT [Concomitant]
  4. PREDNISONE [Concomitant]
  5. PAXIL [Concomitant]

REACTIONS (8)
  - ACTIVITIES OF DAILY LIVING IMPAIRED [None]
  - ASTHENIA [None]
  - FATIGUE [None]
  - HYPOTHALAMO-PITUITARY DISORDERS [None]
  - MUSCULAR WEAKNESS [None]
  - POST PROCEDURAL COMPLICATION [None]
  - RASH PRURITIC [None]
  - SOMNOLENCE [None]
